FAERS Safety Report 6444706-1 (Version None)
Quarter: 2009Q4

REPORT INFORMATION
  Report Type: 
  Country: None (occurrence: None)
  Receive Date: 20091118
  Receipt Date: 20091109
  Transmission Date: 20100525
  Serious: Yes (Hospitalization)
  Sender: FDA-Public Use
  Company Number: A0806089A

PATIENT
  Sex: Male
  Weight: 54.5 kg

DRUGS (1)
  1. VOTRIENT [Suspect]
     Dosage: 800MG PER DAY
     Route: 048
     Dates: start: 20090728

REACTIONS (7)
  - GENERAL PHYSICAL HEALTH DETERIORATION [None]
  - HYPERKALAEMIA [None]
  - HYPONATRAEMIA [None]
  - NEOPLASM PROGRESSION [None]
  - OROPHARYNGEAL PAIN [None]
  - PERFORMANCE STATUS DECREASED [None]
  - URINARY TRACT INFECTION [None]
